FAERS Safety Report 8565172-6 (Version None)
Quarter: 2012Q3

REPORT INFORMATION
  Report Type: 
  Country: None (occurrence: None)
  Receive Date: 20120803
  Receipt Date: 20120723
  Transmission Date: 20120928
  Serious: Yes (Other)
  Sender: FDA-Public Use
  Company Number: GB-ROCHE-1093558

PATIENT
  Age: 77 Year
  Sex: Male

DRUGS (4)
  1. LUCENTIS [Suspect]
     Indication: AGE-RELATED MACULAR DEGENERATION
  2. TEICOPLANIN [Concomitant]
  3. CIPROFLOXACIN [Concomitant]
  4. POVIDONE IODINE [Concomitant]

REACTIONS (2)
  - ANTERIOR CHAMBER CELL [None]
  - ENDOPHTHALMITIS [None]
